FAERS Safety Report 7652063-8 (Version None)
Quarter: 2011Q3

REPORT INFORMATION
  Report Type: 
  Country: None (occurrence: None)
  Receive Date: 20110803
  Receipt Date: 20110725
  Transmission Date: 20111222
  Serious: No
  Sender: FDA-Public Use
  Company Number: US-BIOGENIDEC-2011BI027809

PATIENT
  Age: 41 Year
  Sex: Female

DRUGS (1)
  1. AVONEX [Suspect]
     Indication: MULTIPLE SCLEROSIS
     Route: 030
     Dates: start: 20110331

REACTIONS (5)
  - GAIT DISTURBANCE [None]
  - APHASIA [None]
  - IMPAIRED DRIVING ABILITY [None]
  - HEADACHE [None]
  - DYSARTHRIA [None]
